FAERS Safety Report 20323271 (Version 1)
Quarter: 2022Q1

REPORT INFORMATION
  Report Type: Spontaneous
  Country: US (occurrence: None)
  Receive Date: 20220111
  Receipt Date: 20220111
  Transmission Date: 20220423
  Serious: No
  Sender: FDA-Public Use
  Company Number: None

PATIENT
  Age: 80 Year
  Sex: Female
  Weight: 44.5 kg

DRUGS (9)
  1. TEMOZOLOMIDE [Suspect]
     Active Substance: TEMOZOLOMIDE
     Indication: Brain neoplasm malignant
     Dosage: FREQUENCY : DAILY;?
     Route: 048
     Dates: start: 20211221, end: 20220111
  2. Quinapril HCl Oral Tablet 40 MG [Concomitant]
  3. Acetaminophen Oral Tablet 325 MG [Concomitant]
  4. Atorvastatin Calcium Oral Tablet 20 [Concomitant]
  5. Cartia XT Oral Capsule Extended Rel [Concomitant]
  6. Dexamethasone Oral Tablet 2 MG [Concomitant]
  7. Keppra Oral Tablet 500 MG [Concomitant]
  8. Prochlorperazine Maleate Oral Table [Concomitant]
  9. Protonix Oral Tablet Delayed Releas [Concomitant]

REACTIONS (2)
  - Fatigue [None]
  - Ill-defined disorder [None]

NARRATIVE: CASE EVENT DATE: 20220111
